FAERS Safety Report 5851837-3 (Version None)
Quarter: 2008Q3

REPORT INFORMATION
  Report Type: 
  Country: None (occurrence: None)
  Receive Date: 20080813
  Receipt Date: 20071115
  Transmission Date: 20090109
  Serious: Yes (Other)
  Sender: FDA-Public Use
  Company Number: PHEH2007US14904

PATIENT
  Sex: Female

DRUGS (2)
  1. LOTENSIN [Suspect]
  2. ACETYLSALICYLIC ACID SRT [Suspect]

REACTIONS (1)
  - HYPOTENSION [None]
